FAERS Safety Report 5889343-2 (Version None)
Quarter: 2008Q3

REPORT INFORMATION
  Report Type: 
  Country: None (occurrence: None)
  Receive Date: 20080919
  Receipt Date: 20080909
  Transmission Date: 20090109
  Serious: Yes (Hospitalization)
  Sender: FDA-Public Use
  Company Number: JP-ELI_LILLY_AND_COMPANY-JP200809003330

PATIENT
  Age: 72 Year
  Sex: Male

DRUGS (7)
  1. LISPRO [Suspect]
     Indication: TYPE 1 DIABETES MELLITUS
     Dosage: 8 IU, EACH MORNING
     Route: 058
  2. LISPRO [Suspect]
     Dosage: 4 IU, DAILY (1/D)
     Route: 058
  3. LISPRO [Suspect]
     Dosage: 4 IU, EACH EVENING
     Route: 058
  4. HUMULIN N [Suspect]
     Indication: TYPE 1 DIABETES MELLITUS
     Dosage: 10 IU, DAILY (1/D)
     Route: 058
  5. AMLODIPINE [Concomitant]
     Dosage: 10 MG, UNK
     Route: 065
  6. CANDESARTAN [Concomitant]
     Dosage: 8 MG, UNK
     Route: 065
  7. TRICHLORMETHIAZIDE [Concomitant]
     Dosage: 1 MG, UNK
     Route: 065

REACTIONS (5)
  - DIABETIC KETOACIDOSIS [None]
  - HYPOGLYCAEMIA [None]
  - HYPOTHERMIA [None]
  - RENAL FAILURE ACUTE [None]
  - RHABDOMYOLYSIS [None]
